FAERS Safety Report 16108374 (Version 8)
Quarter: 2020Q1

REPORT INFORMATION
  Report Type: Report from Study
  Country: RO (occurrence: RO)
  Receive Date: 20190323
  Receipt Date: 20200319
  Transmission Date: 20200409
  Serious: Yes (Life-Threatening, Hospitalization, Disabling, Other)
  Sender: FDA-Public Use
  Company Number: RO-AMGEN-ROUNI2019042588

PATIENT
  Age: 61 Year
  Sex: Male
  Weight: 60 kg

DRUGS (9)
  1. ZOLEDRONIC ACID [Concomitant]
     Active Substance: ZOLEDRONIC ACID
     Dosage: 4 MILLIGRAM
     Dates: start: 20150424, end: 20190226
  2. CARFILZOMIB [Suspect]
     Active Substance: CARFILZOMIB
     Dosage: 56 MILLIGRAM/SQ. METER
     Route: 042
  3. CARFILZOMIB [Suspect]
     Active Substance: CARFILZOMIB
     Indication: PLASMA CELL MYELOMA
     Dosage: 20 MILLIGRAM/SQ. METER
     Route: 042
     Dates: start: 20180108
  4. BISOPROLOL [Concomitant]
     Active Substance: BISOPROLOL
     Dosage: 5 MILLIGRAM
     Dates: start: 20160120, end: 20190314
  5. DEXAMETHASONE. [Concomitant]
     Active Substance: DEXAMETHASONE
     Indication: PLASMA CELL MYELOMA
     Dosage: 20 MILLIGRAM
     Dates: start: 20180108
  6. CALCIUM+VITAMIN D3 [Concomitant]
     Active Substance: CALCIUM\CHOLECALCIFEROL
     Dosage: 400 MILLIGRAM
     Dates: start: 20141118, end: 20190313
  7. DHC CONTINUS [Concomitant]
     Active Substance: DIHYDROCODEINE BITARTRATE
     Dosage: 120 MILLIGRAM
     Dates: start: 20141208
  8. CEFIXIME. [Concomitant]
     Active Substance: CEFIXIME
     Dosage: 200 MILLIGRAM
     Dates: start: 20190307, end: 20190314
  9. ACYCLOVIR [ACICLOVIR] [Concomitant]
     Active Substance: ACYCLOVIR
     Dosage: 400 MILLIGRAM
     Dates: start: 20180108, end: 20190318

REACTIONS (4)
  - Acute kidney injury [Recovered/Resolved]
  - Acute respiratory failure [Recovered/Resolved]
  - Stomatitis [Recovered/Resolved]
  - Atrial fibrillation [Recovered/Resolved]

NARRATIVE: CASE EVENT DATE: 20190315
